FAERS Safety Report 9515478 (Version 2)
Quarter: 2014Q1

REPORT INFORMATION
  Report Type: Spontaneous
  Country: US (occurrence: None)
  Receive Date: 20130305
  Receipt Date: 20140306
  Transmission Date: 20141002
  Serious: Yes (Other)
  Sender: FDA-Public Use
  Company Number: 163-21880-12020684

PATIENT
  Age: 62 Year
  Sex: Female
  Weight: 78 kg

DRUGS (17)
  1. REVLIMID [Suspect]
     Indication: PLASMA CELL MYELOMA
     Route: 048
     Dates: start: 20111123
  2. ACYCLOVIR [Concomitant]
  3. LISINOPRIL [Concomitant]
  4. KLOR-CON [Concomitant]
  5. PRAMIPEXOLE [Concomitant]
  6. BACTRIM [Concomitant]
  7. VELCADE (ORTEZOMIB) [Concomitant]
  8. ALIGN [Concomitant]
  9. EC ASPIRIN [Concomitant]
  10. DIFLUCAN (FLUCONAZOLE) [Concomitant]
  11. DEXAMETHASONE [Concomitant]
  12. COUMADIN [Concomitant]
  13. NORVASC [Concomitant]
  14. FAMVIR [Concomitant]
  15. ZOMETA [Concomitant]
  16. ALLEGRA [Concomitant]
  17. ATENOLOL [Concomitant]

REACTIONS (18)
  - Skin hyperpigmentation [None]
  - Cough [None]
  - Fatigue [None]
  - Anaemia [None]
  - Pain in extremity [None]
  - Pruritus generalised [None]
  - Hyperaesthesia [None]
  - Onychoclasis [None]
  - Weight increased [None]
  - Neuropathy peripheral [None]
  - Swelling [None]
  - Pain in extremity [None]
  - Hypoaesthesia [None]
  - Skin burning sensation [None]
  - Local swelling [None]
  - Diarrhoea [None]
  - Muscle spasms [None]
  - Abdominal pain [None]
